FAERS Safety Report 10373352 (Version 1)
Quarter: 2014Q3

REPORT INFORMATION
  Report Type: Spontaneous
  Country: US (occurrence: US)
  Receive Date: 20140808
  Receipt Date: 20140808
  Transmission Date: 20150326
  Serious: Yes (Other)
  Sender: FDA-Public Use
  Company Number: US-CELGENEUS-163-21880-14081070

PATIENT

DRUGS (3)
  1. SAR650984 [Suspect]
     Active Substance: INVESTIGATIONAL PRODUCT
     Indication: PLASMA CELL MYELOMA
     Dosage: 3, 5, 10 MG/KG
     Route: 041
  2. REVLIMID [Suspect]
     Active Substance: LENALIDOMIDE
     Indication: PLASMA CELL MYELOMA
     Route: 048
  3. DEXAMETHASONE. [Suspect]
     Active Substance: DEXAMETHASONE
     Indication: PLASMA CELL MYELOMA
     Route: 065

REACTIONS (12)
  - Dehydration [Unknown]
  - Neutropenia [Unknown]
  - Cough [Unknown]
  - Muscle spasms [Unknown]
  - Bronchospasm [Unknown]
  - Nausea [Unknown]
  - Diarrhoea [Unknown]
  - Insomnia [Unknown]
  - Fatigue [Unknown]
  - Infection [Unknown]
  - Thrombocytopenia [Unknown]
  - Vomiting [Unknown]
